FAERS Safety Report 11253440 (Version 2)
Quarter: 2015Q3

REPORT INFORMATION
  Report Type: Spontaneous
  Country: US (occurrence: US)
  Receive Date: 20150709
  Receipt Date: 20150803
  Transmission Date: 20151125
  Serious: No
  Sender: FDA-Public Use
  Company Number: US-AMGEN-USASP2015065839

PATIENT
  Age: 49 Year
  Sex: Female
  Weight: 76 kg

DRUGS (4)
  1. ENBREL [Suspect]
     Active Substance: ETANERCEPT
     Indication: RHEUMATOID ARTHRITIS
     Dosage: 50 MG, WEEKLY
     Route: 058
     Dates: start: 20150604, end: 20150702
  2. CYMBALTA [Concomitant]
     Active Substance: DULOXETINE HYDROCHLORIDE
     Dosage: 60 MG, QD
  3. ASPIRIN                            /00002701/ [Concomitant]
     Active Substance: ASPIRIN
     Dosage: 81 MG, QD
  4. LOVASTATIN. [Concomitant]
     Active Substance: LOVASTATIN
     Dosage: 10 MG, QD

REACTIONS (4)
  - Nausea [Recovered/Resolved]
  - Headache [Recovered/Resolved]
  - Rash pruritic [Recovered/Resolved]
  - Malaise [Not Recovered/Not Resolved]

NARRATIVE: CASE EVENT DATE: 20150628
